FAERS Safety Report 8922614 (Version 3)
Quarter: 2013Q1

REPORT INFORMATION
  Report Type: Spontaneous
  Country: US (occurrence: US)
  Receive Date: 20121123
  Receipt Date: 20130318
  Transmission Date: 20140127
  Serious: Yes (Other)
  Sender: FDA-Public Use
  Company Number: US-PFIZER INC-2012290310

PATIENT
  Age: 46 Year
  Sex: Female
  Weight: 61 kg

DRUGS (11)
  1. CYTOMEL [Suspect]
     Indication: THYROID DISORDER
     Dosage: 5 UG, DAILY
     Dates: start: 20120917, end: 20120919
  2. CYTOMEL [Suspect]
     Indication: HYPOTHYROIDISM
     Dosage: 5 UG, 2X/DAY
     Route: 048
     Dates: start: 20120917, end: 20120921
  3. ARMOUR THYROID [Concomitant]
     Indication: THYROID DISORDER
     Dosage: 60 UG, DAILY
  4. ARMOUR THYROID [Concomitant]
     Dosage: 90 MG, 1X/DAY FOR 1 WEEK
  5. FISH OIL [Concomitant]
     Dosage: UNK
  6. AMBIEN [Concomitant]
     Dosage: 10 MG, EVERY ^NOC^
  7. VITAMIN D [Concomitant]
     Dosage: 2000 IU, UNK
  8. VITAMIN E [Concomitant]
     Dosage: 400 IU, UNK
  9. VALIUM [Concomitant]
     Dosage: 5 MG, HALF TABLET
  10. SYNTHROID [Concomitant]
     Dosage: 88 UG, HALF TABLET DAILY FOR 1 WEEK
  11. SYNTHROID [Concomitant]
     Dosage: 88 UG, 1X/DAY

REACTIONS (2)
  - Dyspnoea [Recovered/Resolved]
  - Dermatitis allergic [Recovered/Resolved]
